FAERS Safety Report 5695176-2 (Version None)
Quarter: 2008Q2

REPORT INFORMATION
  Report Type: 
  Country: None (occurrence: None)
  Receive Date: 20080404
  Receipt Date: 20080325
  Transmission Date: 20081010
  Serious: Yes (Other)
  Sender: FDA-Public Use
  Company Number: FR-PFIZER INC-2008027313

PATIENT
  Age: 51 Year
  Sex: Male

DRUGS (3)
  1. CHAMPIX [Suspect]
     Indication: SMOKING CESSATION THERAPY
  2. VALPROIC ACID [Concomitant]
  3. LEVETIRACETAM [Concomitant]

REACTIONS (1)
  - EPILEPSY [None]
